FAERS Safety Report 18182332 (Version 19)
Quarter: 2025Q3

REPORT INFORMATION
  Report Type: Report from Study
  Country: CA (occurrence: CA)
  Receive Date: 20200821
  Receipt Date: 20250917
  Transmission Date: 20251021
  Serious: Yes (Other)
  Sender: TAKEDA
  Company Number: CA-TAKEDA-2019TUS049566

PATIENT
  Sex: Female

DRUGS (25)
  1. VEDOLIZUMAB [Suspect]
     Active Substance: VEDOLIZUMAB
     Indication: Crohn^s disease
  2. VEDOLIZUMAB [Suspect]
     Active Substance: VEDOLIZUMAB
  3. VEDOLIZUMAB [Suspect]
     Active Substance: VEDOLIZUMAB
  4. VEDOLIZUMAB [Suspect]
     Active Substance: VEDOLIZUMAB
  5. VEDOLIZUMAB [Suspect]
     Active Substance: VEDOLIZUMAB
  6. VEDOLIZUMAB [Suspect]
     Active Substance: VEDOLIZUMAB
  7. VEDOLIZUMAB [Suspect]
     Active Substance: VEDOLIZUMAB
  8. VEDOLIZUMAB [Suspect]
     Active Substance: VEDOLIZUMAB
  9. VEDOLIZUMAB [Suspect]
     Active Substance: VEDOLIZUMAB
  10. VEDOLIZUMAB [Suspect]
     Active Substance: VEDOLIZUMAB
  11. VEDOLIZUMAB [Suspect]
     Active Substance: VEDOLIZUMAB
  12. VEDOLIZUMAB [Suspect]
     Active Substance: VEDOLIZUMAB
  13. VEDOLIZUMAB [Suspect]
     Active Substance: VEDOLIZUMAB
  14. VEDOLIZUMAB [Suspect]
     Active Substance: VEDOLIZUMAB
  15. VEDOLIZUMAB [Suspect]
     Active Substance: VEDOLIZUMAB
  16. VEDOLIZUMAB [Suspect]
     Active Substance: VEDOLIZUMAB
  17. VEDOLIZUMAB [Suspect]
     Active Substance: VEDOLIZUMAB
  18. VEDOLIZUMAB [Suspect]
     Active Substance: VEDOLIZUMAB
  19. VEDOLIZUMAB [Suspect]
     Active Substance: VEDOLIZUMAB
  20. VEDOLIZUMAB [Suspect]
     Active Substance: VEDOLIZUMAB
  21. VEDOLIZUMAB [Suspect]
     Active Substance: VEDOLIZUMAB
  22. VEDOLIZUMAB [Suspect]
     Active Substance: VEDOLIZUMAB
  23. BENADRYL [Suspect]
     Active Substance: DIPHENHYDRAMINE HYDROCHLORIDE
     Indication: Premedication
  24. GRAVOL [Suspect]
     Active Substance: DIMENHYDRINATE
     Indication: Premedication
  25. DIPHENHYDRAMINE [Concomitant]
     Active Substance: DIPHENHYDRAMINE
     Indication: Premedication

REACTIONS (3)
  - Cataract [Unknown]
  - Somnolence [Unknown]
  - Blood pressure increased [Unknown]
